FAERS Safety Report 5728323-4 (Version None)
Quarter: 2008Q2

REPORT INFORMATION
  Report Type: 
  Country: None (occurrence: None)
  Receive Date: 20080430
  Receipt Date: 20080423
  Transmission Date: 20081010
  Serious: Yes (Death, Life-Threatening, Hospitalization)
  Sender: FDA-Public Use
  Company Number: 028-C5013-07030453

PATIENT
  Age: 34 Year
  Sex: Male

DRUGS (8)
  1. CC-5013 (LENALIDOMIDE) (CAPSULES) [Suspect]
     Indication: MULTIPLE MYELOMA
     Dosage: 25 MG, DAILY, ORAL
     Route: 048
     Dates: start: 20060901, end: 20070306
  2. DEXAMETHASONE TAB [Suspect]
     Indication: MULTIPLE MYELOMA
     Dosage: 40 MG, DAY 1-4, ORAL
     Route: 048
     Dates: start: 20060901, end: 20070306
  3. SOLU-MEDROL [Concomitant]
  4. SALBUTAMOL (SALBUTAMOL) [Concomitant]
  5. DILAUDID (HYDORMORPHONE HYDROCHLORIDE) [Concomitant]
  6. DIAZEPAM [Concomitant]
  7. ACETAMINOPHEN [Concomitant]
  8. VALIUM [Concomitant]

REACTIONS (6)
  - ACIDOSIS [None]
  - DISSEMINATED INTRAVASCULAR COAGULATION [None]
  - LOSS OF CONSCIOUSNESS [None]
  - RENAL TUBULAR NECROSIS [None]
  - SEPTIC SHOCK [None]
  - STREPTOCOCCAL INFECTION [None]
